FAERS Safety Report 16844952 (Version 1)
Quarter: 2019Q4

REPORT INFORMATION
  Report Type: Spontaneous
  Country: US (occurrence: US)
  Receive Date: 20190924
  Receipt Date: 20190924
  Transmission Date: 20200122
  Serious: Yes (Disabling)
  Sender: FDA-Public Use
  Company Number: None

PATIENT
  Age: 37 Year
  Sex: Female
  Weight: 76.5 kg

DRUGS (1)
  1. ARISTADA [Suspect]
     Active Substance: ARIPIPRAZOLE LAUROXIL
     Indication: BEHAVIOUR DISORDER
     Route: 030
     Dates: start: 20190301

REACTIONS (3)
  - Yawning [None]
  - Facial paralysis [None]
  - Swollen tongue [None]

NARRATIVE: CASE EVENT DATE: 20190603
